FAERS Safety Report 23252915 (Version 1)
Quarter: 2023Q4

REPORT INFORMATION
  Report Type: Report from Study
  Country: TH (occurrence: TH)
  Receive Date: 20231201
  Receipt Date: 20231201
  Transmission Date: 20240110
  Serious: Yes (Other)
  Sender: FDA-Public Use
  Company Number: TH-TAKEDA-2023TUS115965

PATIENT
  Age: 53 Year
  Sex: Male

DRUGS (2)
  1. BORTEZOMIB [Suspect]
     Active Substance: BORTEZOMIB
     Indication: Anti IFN gamma autoantibody syndrome
     Dosage: 1.3 MILLIGRAM/SQ. METER, 1/WEEK
     Route: 058
     Dates: start: 20170508
  2. CYCLOPHOSPHAMIDE [Suspect]
     Active Substance: CYCLOPHOSPHAMIDE
     Indication: Anti IFN gamma autoantibody syndrome
     Dosage: 1 MILLIGRAM/KILOGRAM 1/WEEK
     Route: 048

REACTIONS (3)
  - Mycobacterium abscessus infection [Unknown]
  - Fungal infection [Unknown]
  - Product use in unapproved indication [Unknown]
